FAERS Safety Report 13980913 (Version 1)
Quarter: 2017Q3

REPORT INFORMATION
  Report Type: Spontaneous
  Country: US (occurrence: US)
  Receive Date: 20170918
  Receipt Date: 20170918
  Transmission Date: 20171128
  Serious: No
  Sender: FDA-Public Use
  Company Number: US-TEVA-694105USA

PATIENT
  Age: 83 Year
  Sex: Male
  Weight: 102.04 kg

DRUGS (15)
  1. VALSARTAN. [Concomitant]
     Active Substance: VALSARTAN
  2. EPLERENONE. [Concomitant]
     Active Substance: EPLERENONE
  3. POLYURONIC ACID [Concomitant]
     Indication: SUPPLEMENTATION THERAPY
  4. FEXOFENADINE [Suspect]
     Active Substance: FEXOFENADINE\FEXOFENADINE HYDROCHLORIDE
     Indication: RHINORRHOEA
     Dosage: 180 MILLIGRAM DAILY;
     Route: 048
     Dates: start: 20160727, end: 201608
  5. CITRACAL [Concomitant]
     Active Substance: CALCIUM CITRATE
  6. METOPROLOL. [Concomitant]
     Active Substance: METOPROLOL
  7. CENTRUM SILVER [Concomitant]
     Active Substance: MINERALS\VITAMINS
  8. VITA-PLUS [Concomitant]
  9. FUROSEMIDE. [Concomitant]
     Active Substance: FUROSEMIDE
  10. PANTOPRAZOLE [Concomitant]
     Active Substance: PANTOPRAZOLE
  11. VITAMIN D [Concomitant]
     Active Substance: CHOLECALCIFEROL
  12. COQ 10 [Concomitant]
     Active Substance: UBIDECARENONE
  13. METHOTREXATE. [Concomitant]
     Active Substance: METHOTREXATE
  14. FOLIC ACID. [Concomitant]
     Active Substance: FOLIC ACID
  15. FISH OIL OMEGA 3 [Concomitant]
     Active Substance: FISH OIL

REACTIONS (3)
  - Drug ineffective [Unknown]
  - Pollakiuria [Recovered/Resolved]
  - Drug administered to patient of inappropriate age [Unknown]

NARRATIVE: CASE EVENT DATE: 20160727
